FAERS Safety Report 5140540-3 (Version None)
Quarter: 2006Q4

REPORT INFORMATION
  Report Type: 
  Country: None (occurrence: None)
  Receive Date: 20061025
  Receipt Date: 20061009
  Transmission Date: 20070319
  Serious: Yes (Hospitalization)
  Sender: FDA-Public Use
  Company Number: S06-ITA-04131-01

PATIENT
  Age: 34 Year
  Sex: Female
  Weight: 68 kg

DRUGS (3)
  1. CIPRALEX (ESCITALOPRAM) [Suspect]
     Indication: AFFECTIVE DISORDER
     Dosage: 5 MG QD PO
     Route: 048
  2. CIPRALEX (ESCITALOPRAM) [Suspect]
     Indication: AFFECTIVE DISORDER
     Dosage: 10 MG QD PO
     Route: 048
     Dates: end: 20060330
  3. LORMETAZEPAM [Concomitant]

REACTIONS (11)
  - ANXIETY DISORDER [None]
  - BORDERLINE PERSONALITY DISORDER [None]
  - CAESAREAN SECTION [None]
  - CONDITION AGGRAVATED [None]
  - DEPRESSION [None]
  - DRUG EXPOSURE DURING PREGNANCY [None]
  - FOETAL DISTRESS SYNDROME [None]
  - PANIC ATTACK [None]
  - PRE-ECLAMPSIA [None]
  - PREGNANCY [None]
  - UMBILICAL CORD ABNORMALITY [None]
